FAERS Safety Report 24956208 (Version 2)
Quarter: 2025Q1

REPORT INFORMATION
  Report Type: Spontaneous
  Country: JP (occurrence: JP)
  Receive Date: 20250211
  Receipt Date: 20250227
  Transmission Date: 20250408
  Serious: No
  Sender: PFIZER
  Company Number: JP-PFIZER INC-202500027424

PATIENT

DRUGS (1)
  1. COMIRNATY (RAXTOZINAMERAN) [Suspect]
     Active Substance: RAXTOZINAMERAN
     Indication: COVID-19 immunisation
     Dates: start: 20241213, end: 20241213

REACTIONS (2)
  - Device leakage [Unknown]
  - Device breakage [Unknown]

NARRATIVE: CASE EVENT DATE: 20241213
